FAERS Safety Report 12489454 (Version 1)
Quarter: 2016Q2

REPORT INFORMATION
  Report Type: Spontaneous
  Country: US (occurrence: US)
  Receive Date: 20160622
  Receipt Date: 20160622
  Transmission Date: 20160815
  Serious: No
  Sender: FDA-Public Use
  Company Number: US-009507513-1606USA007818

PATIENT
  Age: 64 Year
  Sex: Male
  Weight: 129.25 kg

DRUGS (15)
  1. ZOLOFT [Concomitant]
     Active Substance: SERTRALINE HYDROCHLORIDE
     Indication: DEPRESSION
     Dosage: 50 MG, ONCE PER DAY
     Route: 048
     Dates: start: 20160311, end: 20160417
  2. CALCIUM CITRATE (+) CHOLECALCIFEROL [Concomitant]
     Indication: NECK INJURY
     Dosage: 1 DF, QD
     Route: 048
     Dates: start: 201510
  3. HYDROCORTISONE. [Concomitant]
     Active Substance: HYDROCORTISONE
     Dosage: UNK
     Route: 042
     Dates: start: 20160415, end: 20160417
  4. PRIMAXIN IV [Suspect]
     Active Substance: CILASTATIN SODIUM\IMIPENEM
     Indication: ANTIBIOTIC THERAPY
     Dosage: UNK
     Route: 042
     Dates: start: 20160415
  5. SODIUM CHLORIDE. [Concomitant]
     Active Substance: SODIUM CHLORIDE
     Dosage: UNK
     Route: 042
     Dates: start: 201604
  6. NORVASC [Concomitant]
     Active Substance: AMLODIPINE BESYLATE
     Indication: HYPERTENSION
     Dosage: 2.5 MG, QD
     Route: 048
  7. PRINIVIL [Concomitant]
     Active Substance: LISINOPRIL
     Indication: HYPERTENSION
     Dosage: 20-12.5 MG, 1/2 TABLET DAILY
     Route: 048
     Dates: start: 1996
  8. ALBUMIN HUMAN [Concomitant]
     Active Substance: ALBUMIN HUMAN
     Dosage: UNK
     Route: 042
     Dates: start: 201604
  9. VANCOMYCIN [Suspect]
     Active Substance: VANCOMYCIN
     Indication: ANTIBIOTIC THERAPY
     Dosage: UNK
     Route: 042
     Dates: start: 20160415, end: 20160415
  10. ULTRAM [Concomitant]
     Active Substance: TRAMADOL HYDROCHLORIDE
     Indication: PAIN
     Dosage: 100 MG, BID
     Route: 048
     Dates: start: 2010
  11. GABAPENTIN. [Concomitant]
     Active Substance: GABAPENTIN
     Indication: HYPOAESTHESIA
  12. MS CONTIN [Concomitant]
     Active Substance: MORPHINE SULFATE
     Indication: PAIN
     Dosage: 200 MG, BID
     Route: 048
     Dates: start: 2011, end: 20160415
  13. NORFLEX [Concomitant]
     Active Substance: ORPHENADRINE CITRATE
     Indication: PAIN
     Dosage: 100 MG, QD
     Route: 048
     Dates: start: 2010
  14. GABAPENTIN. [Concomitant]
     Active Substance: GABAPENTIN
     Indication: PAIN
     Dosage: 100 MG, BID
     Route: 048
     Dates: start: 2010, end: 20160415
  15. LEVOPHED [Concomitant]
     Active Substance: NOREPINEPHRINE BITARTRATE
     Indication: BLOOD PRESSURE SYSTOLIC ABNORMAL
     Dosage: UNK
     Route: 042
     Dates: start: 201604

REACTIONS (1)
  - Red man syndrome [Unknown]

NARRATIVE: CASE EVENT DATE: 20160415
